FAERS Safety Report 4430055-X (Version None)
Quarter: 2004Q3

REPORT INFORMATION
  Report Type: 
  Country: None (occurrence: None)
  Receive Date: 20040820
  Receipt Date: 20040401
  Transmission Date: 20050211
  Serious: Yes (Hospitalization)
  Sender: FDA-Public Use
  Company Number: US-ROCHE-363492

PATIENT
  Age: 79 Year
  Sex: Female
  Weight: 55.9 kg

DRUGS (13)
  1. CAPECITABINE [Suspect]
     Indication: COLORECTAL CANCER METASTATIC
     Route: 048
     Dates: start: 20040216
  2. CAPECITABINE [Suspect]
     Route: 048
  3. BEVACIZUMAB [Suspect]
     Indication: COLORECTAL CANCER METASTATIC
     Dosage: DOSE RECEIVED WAS 420 MG
     Route: 042
     Dates: start: 20040216
  4. BEVACIZUMAB [Suspect]
     Dosage: DOSE GIVEN EQUIVALENT TO 420MG
     Route: 042
  5. DYAZIDE [Concomitant]
  6. WARFARIN SODIUM [Concomitant]
     Indication: PROPHYLAXIS
  7. PROTONIX [Concomitant]
  8. MEGACE [Concomitant]
  9. DARVOCET [Concomitant]
  10. CELEBREX [Concomitant]
  11. FOSAMAX [Concomitant]
  12. DIPHENHYDRAMINE HCL [Concomitant]
  13. LOSARTAN POTASSIUM [Concomitant]

REACTIONS (7)
  - DEHYDRATION [None]
  - DIARRHOEA [None]
  - ENTERITIS [None]
  - GASTROENTERITIS [None]
  - HAEMOGLOBIN DECREASED [None]
  - PROTHROMBIN TIME PROLONGED [None]
  - VOMITING [None]
